FAERS Safety Report 8966063 (Version 1)
Quarter: 2012Q4

REPORT INFORMATION
  Report Type: 
  Country: US (occurrence: US)
  Receive Date: 20121214
  Receipt Date: 20121214
  Transmission Date: 20130627
  Serious: Yes (Other)
  Sender: FDA-Public Use
  Company Number: CHPA2012US024695

PATIENT
  Age: 58 Year
  Sex: Female

DRUGS (2)
  1. CONTROL PLP [Suspect]
     Indication: SMOKING CESSATION THERAPY
     Dosage: 21 mg daily
     Route: 062
     Dates: start: 2010, end: 20121126
  2. CONTROL PLP [Suspect]
     Dosage: 14 mg daily
     Route: 062
     Dates: start: 20121126

REACTIONS (3)
  - Upper respiratory tract infection [Recovered/Resolved]
  - Headache [Recovered/Resolved]
  - Treatment noncompliance [Unknown]
